FAERS Safety Report 23914505 (Version 2)
Quarter: 2024Q2

REPORT INFORMATION
  Report Type: Spontaneous
  Country: US (occurrence: US)
  Receive Date: 20240529
  Receipt Date: 20240606
  Transmission Date: 20240716
  Serious: Yes (Life-Threatening, Hospitalization, Other)
  Sender: FDA-Public Use
  Company Number: US-SUN PHARMACEUTICAL INDUSTRIES LTD-2024R1-448240

PATIENT
  Age: 44 Year
  Sex: Female

DRUGS (1)
  1. NOREPINEPHRINE [Suspect]
     Active Substance: NOREPINEPHRINE\NOREPINEPHRINE BITARTRATE
     Indication: Hypotension
     Dosage: UNK
     Route: 065

REACTIONS (4)
  - Therapy non-responder [Unknown]
  - Systolic anterior motion of mitral valve [Recovering/Resolving]
  - Stress cardiomyopathy [Recovering/Resolving]
  - Left ventricular dysfunction [Recovering/Resolving]
